FAERS Safety Report 4879093-3 (Version None)
Quarter: 2006Q1

REPORT INFORMATION
  Report Type: 
  Country: None (occurrence: None)
  Receive Date: 20060112
  Receipt Date: 20060104
  Transmission Date: 20060701
  Serious: Yes (Other)
  Sender: FDA-Public Use
  Company Number: PHBS2006BR00554

PATIENT
  Age: 74 Year
  Sex: Female
  Weight: 55 kg

DRUGS (7)
  1. ZELMAC [Suspect]
     Indication: CONSTIPATION
     Dosage: 6 MG, BID
     Route: 048
  2. POTASSIUM [Concomitant]
     Indication: CONSTIPATION
     Dosage: UNK, BID
     Route: 048
  3. SODIUM [Concomitant]
     Indication: CONSTIPATION
     Dosage: UNK, BID
     Route: 048
  4. SODIUM BICARBONATE [Concomitant]
     Indication: CONSTIPATION
     Dosage: UNK, BID
     Route: 048
  5. MACROGOL [Concomitant]
     Indication: CONSTIPATION
     Dosage: UNK, BID
  6. OMEPRAZOLE [Concomitant]
     Indication: HIATUS HERNIA
  7. DILTIAZEM HCL [Concomitant]
     Indication: HYPERTENSION

REACTIONS (2)
  - BURNING SENSATION [None]
  - HAEMATOCHEZIA [None]
